FAERS Safety Report 8566676 (Version 2)
Quarter: 2013Q3

REPORT INFORMATION
  Report Type: Spontaneous
  Country: GB (occurrence: GB)
  Receive Date: 20120517
  Receipt Date: 20130930
  Transmission Date: 20140515
  Serious: Yes (Death, Life-Threatening, Other)
  Sender: FDA-Public Use
  Company Number: GB-PFIZER INC-2012116312

PATIENT
  Age: 70 Year
  Sex: Female
  Weight: 80 kg

DRUGS (7)
  1. CIPROFLOXACIN HCL [Suspect]
     Indication: INFECTION
     Dosage: 1 DF, 2X/DAY
     Route: 048
     Dates: start: 20110329, end: 20120405
  2. METHOTREXATE SODIUM [Interacting]
     Indication: PSORIATIC ARTHROPATHY
     Dosage: 20 MG, WEEKLY
     Route: 048
     Dates: end: 20120407
  3. PIPERACILLIN/TAZOBACTAM [Suspect]
     Indication: INFECTION
     Dosage: 4.5 G, 2X/DAY
     Route: 042
     Dates: start: 20120405
  4. ALLOPURINOL [Concomitant]
  5. TEICOPLANIN [Concomitant]
     Indication: INFECTION
     Dosage: UNK
     Dates: end: 20120329
  6. RIFAMPICIN [Concomitant]
     Indication: INFECTION
  7. GENTAMICIN [Concomitant]
     Indication: INFECTION
     Dates: end: 20120329

REACTIONS (18)
  - Stevens-Johnson syndrome [Fatal]
  - Potentiating drug interaction [Not Recovered/Not Resolved]
  - Pancytopenia [Not Recovered/Not Resolved]
  - Sepsis [Unknown]
  - Rash erythematous [Unknown]
  - C-reactive protein increased [Unknown]
  - Renal failure acute [Unknown]
  - Inflammation [Unknown]
  - Pyrexia [Unknown]
  - Tachycardia [Unknown]
  - Liver function test abnormal [Unknown]
  - White blood cell count decreased [Unknown]
  - Haemoglobin decreased [Unknown]
  - Platelet count decreased [Unknown]
  - Mucosal ulceration [Unknown]
  - Blister [Unknown]
  - Mucosal inflammation [Unknown]
  - Pain [Unknown]
